FAERS Safety Report 5617243-1 (Version None)
Quarter: 2008Q1

REPORT INFORMATION
  Report Type: 
  Country: None (occurrence: None)
  Receive Date: 20080206
  Receipt Date: 20080206
  Transmission Date: 20080703
  Serious: Yes (Hospitalization)
  Sender: FDA-Public Use
  Company Number: None

PATIENT
  Sex: Female
  Weight: 71 kg

DRUGS (2)
  1. CYCLOPHOSPHAMIDE [Suspect]
     Dosage: 6576 MG
  2. DOXORUBICIN HYDROCHLORIDE [Suspect]
     Dosage: 658 MG

REACTIONS (17)
  - ANAEMIA [None]
  - ATELECTASIS [None]
  - ATRIAL FIBRILLATION [None]
  - ATRIAL FLUTTER [None]
  - BRONCHITIS [None]
  - DEHYDRATION [None]
  - DIZZINESS [None]
  - HYPERTENSION [None]
  - HYPOKALAEMIA [None]
  - HYPOTENSION [None]
  - HYPOVOLAEMIA [None]
  - NEUTROPENIA [None]
  - PHARYNGOLARYNGEAL PAIN [None]
  - RHONCHI [None]
  - SEPTIC SHOCK [None]
  - SINUS TACHYCARDIA [None]
  - THROMBOCYTOPENIA [None]
